FAERS Safety Report 9201240 (Version 2)
Quarter: 2013Q2

REPORT INFORMATION
  Report Type: Report from Study
  Country: BR (occurrence: BR)
  Receive Date: 20130401
  Receipt Date: 20130605
  Transmission Date: 20140414
  Serious: Yes (Other)
  Sender: FDA-Public Use
  Company Number: PHHY2013BR030971

PATIENT
  Sex: Female
  Weight: 70 kg

DRUGS (6)
  1. ACLASTA [Suspect]
     Indication: OSTEOPOROSIS
     Dosage: 5 MG, UNK
     Route: 042
  2. ARTROLIVE [Concomitant]
     Indication: OSTEOARTHRITIS
     Dosage: 2 DF, UNK
     Route: 048
     Dates: start: 201107
  3. SOMALGIN [Concomitant]
     Dosage: UNK UKN, UNK
  4. SINVASTIN [Concomitant]
     Dosage: UNK UKN, UNK
  5. CYMBALTA [Concomitant]
     Indication: PAIN
     Dosage: 1 DF, UNK
     Route: 048
     Dates: start: 201212
  6. XEFO [Concomitant]
     Indication: INFLAMMATION
     Dosage: 1 DF, UNK
     Route: 048
     Dates: start: 201301

REACTIONS (2)
  - Fall [Recovering/Resolving]
  - Tendon rupture [Recovering/Resolving]
